FAERS Safety Report 9405339 (Version 5)
Quarter: 2014Q4

REPORT INFORMATION
  Report Type: Spontaneous
  Country: JP (occurrence: JP)
  Receive Date: 20130717
  Receipt Date: 20141212
  Transmission Date: 20150529
  Serious: Yes (Other)
  Sender: FDA-Public Use
  Company Number: JP-JNJFOC-20130708912

PATIENT
  Age: 55 Year
  Sex: Male

DRUGS (7)
  1. REMICADE [Suspect]
     Active Substance: INFLIXIMAB
     Indication: PSORIATIC ARTHROPATHY
     Dosage: 6TH DOSE, 1 DAY
     Route: 042
     Dates: start: 20130630, end: 20130630
  2. REMICADE [Suspect]
     Active Substance: INFLIXIMAB
     Indication: PSORIATIC ARTHROPATHY
     Dosage: SEVENTH DOSE, 1 DAY
     Route: 042
     Dates: start: 20130710, end: 20130710
  3. DERMOVATE [Concomitant]
     Active Substance: CLOBETASOL
     Route: 061
  4. OXAROL [Concomitant]
     Active Substance: MAXACALCITOL
     Route: 061
  5. REMICADE [Suspect]
     Active Substance: INFLIXIMAB
     Indication: PSORIATIC ARTHROPATHY
     Route: 042
     Dates: start: 20130513, end: 20130513
  6. ISCOTIN [Concomitant]
     Active Substance: ISONIAZID
     Route: 048
     Dates: start: 20121121, end: 20130711
  7. REMICADE [Suspect]
     Active Substance: INFLIXIMAB
     Indication: PSORIATIC ARTHROPATHY
     Dosage: THERAPY DURATION-5DAYS
     Route: 042
     Dates: start: 20121214

REACTIONS (2)
  - Pneumonia cryptococcal [Recovered/Resolved]
  - Cell marker increased [Not Recovered/Not Resolved]

NARRATIVE: CASE EVENT DATE: 20130710
